FAERS Safety Report 16862738 (Version 1)
Quarter: 2019Q3

REPORT INFORMATION
  Report Type: Spontaneous
  Country: JP (occurrence: JP)
  Receive Date: 20190927
  Receipt Date: 20190927
  Transmission Date: 20191005
  Serious: Yes (Disabling, Other)
  Sender: FDA-Public Use
  Company Number: JP-JNJFOC-20190931291

PATIENT
  Age: 84 Year
  Sex: Male

DRUGS (3)
  1. FEBURIC [Concomitant]
     Active Substance: FEBUXOSTAT
  2. BISOPROLOL FUMARATE. [Concomitant]
     Active Substance: BISOPROLOL FUMARATE
  3. RIVAROXABAN [Suspect]
     Active Substance: RIVAROXABAN
     Indication: ATRIAL FIBRILLATION
     Dosage: 10 MG, QD
     Route: 048
     Dates: start: 20170519

REACTIONS (3)
  - Age-related macular degeneration [Not Recovered/Not Resolved]
  - Retinal detachment [Not Recovered/Not Resolved]
  - Vitreous haemorrhage [Unknown]

NARRATIVE: CASE EVENT DATE: 20190910
